FAERS Safety Report 21357115 (Version 1)
Quarter: 2022Q3

REPORT INFORMATION
  Report Type: Spontaneous
  Country: US (occurrence: US)
  Receive Date: 20220921
  Receipt Date: 20220921
  Transmission Date: 20221027
  Serious: Yes (Other)
  Sender: FDA-Public Use
  Company Number: US-STRIDES ARCOLAB LIMITED-2022SP007671

PATIENT
  Age: 9 Year
  Sex: Male

DRUGS (7)
  1. PREDNISOLONE [Suspect]
     Active Substance: PREDNISOLONE
     Indication: Asthma
     Dosage: 20 MILLIGRAM, FOR 3 DAYS
     Route: 065
  2. PREDNISOLONE [Suspect]
     Active Substance: PREDNISOLONE
     Dosage: 10 MILLIGRAM, FOR 3 DAYS
     Route: 065
  3. MONTELUKAST [Suspect]
     Active Substance: MONTELUKAST SODIUM
     Indication: Asthma
     Dosage: 4 MILLIGRAM, AT BED TIME (AT NIGHT) TABLET
     Route: 048
  4. FLUTICASONE PROPIONATE [Suspect]
     Active Substance: FLUTICASONE PROPIONATE
     Indication: Asthma
     Dosage: 44 MICROGRAM, BID (1 PUFF)
  5. ALBUTEROL [Suspect]
     Active Substance: ALBUTEROL
     Indication: Asthma
     Dosage: 90 MICROGRAM (1-2 PUFFS), AS NEEDED
  6. ALBUTEROL [Suspect]
     Active Substance: ALBUTEROL
     Dosage: UNK, 7 TIMES A WEEK
  7. ALBUTEROL [Suspect]
     Active Substance: ALBUTEROL
     Dosage: 44 MICROGRAM, TID (2 PUFFS)

REACTIONS (1)
  - Drug ineffective [Unknown]
